FAERS Safety Report 7945114-4 (Version None)
Quarter: 2011Q4

REPORT INFORMATION
  Report Type: 
  Country: None (occurrence: None)
  Receive Date: 20111129
  Receipt Date: 20111129
  Transmission Date: 20120403
  Serious: Yes (Hospitalization)
  Sender: FDA-Public Use
  Company Number: None

PATIENT
  Age: 50 Year
  Sex: Female
  Weight: 49.895 kg

DRUGS (2)
  1. DILTIAZEM HCL [Concomitant]
  2. DILANTIN [Suspect]

REACTIONS (3)
  - WRONG DRUG ADMINISTERED [None]
  - GRAND MAL CONVULSION [None]
  - DRUG DISPENSING ERROR [None]
